FAERS Safety Report 10967666 (Version 1)
Quarter: 2015Q1

REPORT INFORMATION
  Report Type: Spontaneous
  Country: US (occurrence: US)
  Receive Date: 20150330
  Receipt Date: 20150330
  Transmission Date: 20150721
  Serious: No
  Sender: FDA-Public Use
  Company Number: US-ASTRAZENECA-2014SE18986

PATIENT
  Age: 75 Year
  Sex: Female
  Weight: 59 kg

DRUGS (1)
  1. NEXIUM [Suspect]
     Active Substance: ESOMEPRAZOLE MAGNESIUM
     Indication: DYSPEPSIA
     Route: 048
     Dates: start: 2006

REACTIONS (5)
  - Product use issue [Unknown]
  - Confusional state [Not Recovered/Not Resolved]
  - Adverse event [Unknown]
  - Diarrhoea [Not Recovered/Not Resolved]
  - Intentional product misuse [Not Recovered/Not Resolved]
